FAERS Safety Report 6190180-2 (Version None)
Quarter: 2009Q2

REPORT INFORMATION
  Report Type: 
  Country: None (occurrence: None)
  Receive Date: 20090514
  Receipt Date: 20090507
  Transmission Date: 20091009
  Serious: Yes (Hospitalization, Disabling, Other)
  Sender: FDA-Public Use
  Company Number: US-ELI_LILLY_AND_COMPANY-US200806002490

PATIENT
  Sex: Female

DRUGS (48)
  1. FORTEO [Suspect]
     Indication: OSTEOPOROSIS
     Dosage: UNK, UNK
     Dates: start: 20080502, end: 20080601
  2. FORTEO [Suspect]
     Dosage: UNK, UNK
     Dates: start: 20080601
  3. FORTEO [Suspect]
     Dates: start: 20081101
  4. FORTEO [Suspect]
  5. FORTEO [Suspect]
  6. FORTEO [Suspect]
  7. FORTEO [Suspect]
  8. FORTEO [Suspect]
  9. FORTEO [Suspect]
  10. FORTEO [Suspect]
  11. TYLENOL                                 /SCH/ [Concomitant]
     Dosage: 1000 MG, 2/D
  12. NEXIUM [Concomitant]
     Dosage: 40 MG, 2/D
  13. GLUCOTROL [Concomitant]
     Dosage: 10 MG, EACH MORNING
  14. GLUCOTROL [Concomitant]
     Dosage: 5 MG, EACH MORNING
  15. GLUCOTROL [Concomitant]
     Dosage: UNK, 2/D
  16. GLUCOPHAGE [Concomitant]
     Dosage: 500 MG, 2/D
  17. LANOXIN [Concomitant]
     Dosage: 0.125 MG, DAILY (1/D)
  18. ALTACE [Concomitant]
     Dosage: UNK, 2/D
  19. IPRATROPIUM BROMIDE [Concomitant]
  20. MIRALAX [Concomitant]
     Dosage: 17 G, DAILY (1/D)
  21. METAMUCIL [Concomitant]
     Dosage: 17 MG, DAILY (1/D)
  22. SULFACETAMIDE [Concomitant]
     Dosage: UNK, 2/D
  23. NEOMYCIN SULF/POLYMYXIN B SULF/DEXAMETHASONE [Concomitant]
     Dosage: UNK, AS NEEDED
  24. HYPOTEARS DDPF [Concomitant]
  25. ASMANEX TWISTHALER [Concomitant]
     Dosage: UNK, 2/D
  26. XOPENEX [Concomitant]
     Dosage: UNK, 3/D
  27. CARDIZEM SR [Concomitant]
     Dosage: 120 MG, 2/D
  28. LISINOPRIL [Concomitant]
     Dosage: 10 MG, 2/D
  29. IMDUR [Concomitant]
     Dosage: 30 MG, DAILY (1/D)
  30. LASIX [Concomitant]
     Dosage: 40 MG, DAILY (1/D)
  31. XANAX [Concomitant]
     Dosage: 0.125 MG, UNK
  32. ASPIRIN [Concomitant]
     Dosage: 162 MG, DAILY (1/D)
  33. SIMVASTATIN [Concomitant]
     Dosage: 10 MG, DAILY (1/D)
  34. NITROGLYCERIN [Concomitant]
     Dosage: 0.4 MG, AS NEEDED
  35. ATROVENT [Concomitant]
     Dosage: UNK, 2/D
  36. SINGULAIR [Concomitant]
     Dosage: 10 MG, DAILY (1/D)
  37. MYCELEX [Concomitant]
  38. CENTRUM [Concomitant]
     Dosage: UNK, DAILY (1/D)
  39. CALCIUM CARBONATE [Concomitant]
     Dosage: 500 MG, 2/D
  40. ERGOCALCIFEROL [Concomitant]
     Dosage: 125 U, 2/D
  41. ASCORBIC ACID [Concomitant]
     Dosage: 500 MG, 2/D
  42. VITAMIN E [Concomitant]
     Dosage: 400 IU, DAILY (1/D)
  43. GARLIC [Concomitant]
     Dosage: 167 MG, DAILY (1/D)
  44. FISH OIL [Concomitant]
     Dosage: 1000 MG, 2/D
  45. CRANBERRY [Concomitant]
     Dosage: 1680 MG, DAILY (1/D)
  46. INTAL [Concomitant]
  47. CROMOLYN SODIUM [Concomitant]
  48. FLAXSEED OIL [Concomitant]
     Dosage: 1000 MG, UNK

REACTIONS (26)
  - ANGER [None]
  - BACK PAIN [None]
  - BALANCE DISORDER [None]
  - BONE PAIN [None]
  - CARDIAC DISORDER [None]
  - CHEST PAIN [None]
  - CONSTIPATION [None]
  - DISABILITY [None]
  - DRUG INTERACTION [None]
  - FEAR [None]
  - FEELING ABNORMAL [None]
  - HAEMATOCHEZIA [None]
  - ILL-DEFINED DISORDER [None]
  - INCISION SITE COMPLICATION [None]
  - INFECTION [None]
  - MOVEMENT DISORDER [None]
  - MUSCLE SPASMS [None]
  - NERVOUSNESS [None]
  - OEDEMA PERIPHERAL [None]
  - PAIN [None]
  - PROCEDURAL COMPLICATION [None]
  - PSYCHOMOTOR SKILLS IMPAIRED [None]
  - SPINAL COLUMN STENOSIS [None]
  - URINARY TRACT INFECTION [None]
  - WEIGHT INCREASED [None]
  - WOUND [None]
